FAERS Safety Report 21022239 (Version 1)
Quarter: 2022Q2

REPORT INFORMATION
  Report Type: Spontaneous
  Country: US (occurrence: None)
  Receive Date: 20220628
  Receipt Date: 20220628
  Transmission Date: 20220721
  Serious: Yes (Hospitalization)
  Sender: FDA-Public Use
  Company Number: None

PATIENT
  Age: 82 Day
  Sex: Female
  Weight: 58.2 kg

DRUGS (16)
  1. DURVALUMAB [Suspect]
     Active Substance: DURVALUMAB
     Indication: Non-small cell lung cancer
     Dosage: OTHER FREQUENCY : Q 28 DAYS;?
     Route: 042
     Dates: start: 20220527
  2. COPANLISIB [Suspect]
     Active Substance: COPANLISIB
     Indication: Non-small cell lung cancer
     Dosage: OTHER FREQUENCY : Q14DAYS;?
     Route: 042
     Dates: start: 20220527
  3. ALBUTEROL [Concomitant]
     Active Substance: ALBUTEROL
  4. AMLODIPINE [Concomitant]
     Active Substance: AMLODIPINE BESYLATE
  5. ASPIRIN [Concomitant]
     Active Substance: ASPIRIN
  6. ATORVASTATIN [Concomitant]
     Active Substance: ATORVASTATIN
  7. CARVEDILOL [Concomitant]
     Active Substance: CARVEDILOL
  8. CLOPIDOGREL [Concomitant]
     Active Substance: CLOPIDOGREL BISULFATE
  9. FLUTICASONE [Concomitant]
     Active Substance: FLUTICASONE
  10. GLIPIZIDE [Concomitant]
     Active Substance: GLIPIZIDE
  11. LORAZEPAM [Concomitant]
     Active Substance: LORAZEPAM
  12. METFORMIN [Concomitant]
     Active Substance: METFORMIN HYDROCHLORIDE
  13. MOEXIPRIL [Concomitant]
     Active Substance: MOEXIPRIL
  14. POTASSIUM CHLORIDE [Concomitant]
     Active Substance: POTASSIUM CHLORIDE
  15. PROCHLORPERAZINE [Concomitant]
     Active Substance: PROCHLORPERAZINE
  16. TRADJENTA [Concomitant]
     Active Substance: LINAGLIPTIN

REACTIONS (8)
  - Urinary tract infection [None]
  - Hypoxia [None]
  - Dehydration [None]
  - Vomiting [None]
  - Mental status changes [None]
  - Bradycardia [None]
  - Pulmonary embolism [None]
  - Oxygen saturation abnormal [None]

NARRATIVE: CASE EVENT DATE: 20220626
